FAERS Safety Report 10177333 (Version 2)
Quarter: 2014Q2

REPORT INFORMATION
  Report Type: Spontaneous
  Country: US (occurrence: US)
  Receive Date: 20140516
  Receipt Date: 20140516
  Transmission Date: 20141212
  Serious: Yes (Hospitalization, Other)
  Sender: FDA-Public Use
  Company Number: US-GILEAD-2014-0095417

PATIENT
  Sex: Male

DRUGS (2)
  1. LETAIRIS [Suspect]
     Indication: PULMONARY HYPERTENSION
     Dosage: 10 MG, UNK
     Route: 065
     Dates: start: 20100927
  2. LETAIRIS [Suspect]
     Indication: SARCOIDOSIS

REACTIONS (5)
  - Interstitial lung disease [Unknown]
  - Acute respiratory failure [Unknown]
  - Hypoxia [Unknown]
  - Hypercapnia [Unknown]
  - Dyspnoea [Unknown]
